FAERS Safety Report 7673965-2 (Version None)
Quarter: 2011Q3

REPORT INFORMATION
  Report Type: 
  Country: None (occurrence: None)
  Receive Date: 20110810
  Receipt Date: 20110806
  Transmission Date: 20111222
  Serious: No
  Sender: FDA-Public Use
  Company Number: US-TEVA-295429USA

PATIENT
  Sex: Female
  Weight: 83.99 kg

DRUGS (5)
  1. PLAN B ONE-STEP [Suspect]
     Indication: POST COITAL CONTRACEPTION
     Dosage: 1.5 MILLIGRAM;
     Route: 048
     Dates: start: 20110802, end: 20110802
  2. WELLBUTRIN [Concomitant]
     Indication: MOOD SWINGS
  3. CELEXA [Concomitant]
     Indication: PRODUCT USED FOR UNKNOWN INDICATION
  4. LYRICA [Concomitant]
     Indication: FIBROSIS
  5. NEXIUM [Concomitant]
     Indication: DYSPEPSIA

REACTIONS (1)
  - ABDOMINAL PAIN LOWER [None]
